FAERS Safety Report 11052941 (Version 1)
Quarter: 2015Q2

REPORT INFORMATION
  Report Type: Spontaneous
  Country: US (occurrence: None)
  Receive Date: 20150417
  Receipt Date: 20150417
  Transmission Date: 20150821
  Serious: Yes (Other)
  Sender: FDA-Public Use
  Company Number: 2015040020

PATIENT
  Age: 34 Year
  Sex: Female

DRUGS (5)
  1. SUBLINOX 10 MG [Suspect]
     Active Substance: ZOLPIDEM TARTRATE
     Indication: INSOMNIA
     Route: 048
     Dates: start: 2014
  2. SYNTHROID [Concomitant]
     Active Substance: LEVOTHYROXINE SODIUM
  3. VYVANSE [Concomitant]
     Active Substance: LISDEXAMFETAMINE DIMESYLATE
  4. CLONAZEPAM (CLONAZEPAM) [Concomitant]
     Active Substance: CLONAZEPAM
  5. TRINTELLIX (VORTIOXEITNE) [Concomitant]

REACTIONS (2)
  - Major depression [None]
  - Psychomotor retardation [None]
